FAERS Safety Report 7117306-8 (Version None)
Quarter: 2010Q4

REPORT INFORMATION
  Report Type: 
  Country: None (occurrence: None)
  Receive Date: 20101122
  Receipt Date: 20101108
  Transmission Date: 20110411
  Serious: Yes (Other)
  Sender: FDA-Public Use
  Company Number: NL-ELI_LILLY_AND_COMPANY-NL201010003482

PATIENT
  Sex: Female

DRUGS (4)
  1. HUMALOG [Suspect]
     Indication: DIABETES MELLITUS
     Dates: start: 20061222
  2. HUMALOG [Suspect]
     Dosage: 6 U, OTHER
     Dates: start: 20061222
  3. HUMALOG [Suspect]
     Dosage: 8 U, EACH EVENING
     Dates: start: 20061222
  4. LANTUS [Concomitant]
     Indication: DIABETES MELLITUS
     Dosage: 36 U, UNKNOWN

REACTIONS (2)
  - HYPOGLYCAEMIC UNCONSCIOUSNESS [None]
  - WRONG DRUG ADMINISTERED [None]
